FAERS Safety Report 15569343 (Version 1)
Quarter: 2018Q4

REPORT INFORMATION
  Report Type: Spontaneous
  Country: US (occurrence: US)
  Receive Date: 20181031
  Receipt Date: 20181031
  Transmission Date: 20190205
  Serious: Yes (Other)
  Sender: FDA-Public Use
  Company Number: PHEH2018US045070

PATIENT
  Sex: Male

DRUGS (1)
  1. NILOTINIB [Suspect]
     Active Substance: NILOTINIB
     Indication: CHRONIC MYELOID LEUKAEMIA
     Dosage: UNK
     Route: 065
     Dates: start: 201709

REACTIONS (5)
  - Chronic myeloid leukaemia [Unknown]
  - Philadelphia chromosome positive [Unknown]
  - Marrow hyperplasia [Unknown]
  - Malignant neoplasm progression [Unknown]
  - Cytogenetic analysis abnormal [Unknown]
